FAERS Safety Report 7748173-7 (Version None)
Quarter: 2011Q3

REPORT INFORMATION
  Report Type: 
  Country: None (occurrence: None)
  Receive Date: 20110913
  Receipt Date: 20110831
  Transmission Date: 20111222
  Serious: Yes (Other)
  Sender: FDA-Public Use
  Company Number: JP-SANOFI-AVENTIS-2011SA056459

PATIENT
  Sex: Male

DRUGS (5)
  1. SOLOSTAR [Suspect]
     Indication: DEVICE THERAPY
     Route: 065
  2. LANTUS [Suspect]
     Route: 065
  3. LANTUS [Suspect]
     Route: 065
  4. LANTUS [Suspect]
     Route: 065
  5. PENFILL N [Concomitant]
     Dosage: DOSE:38 UNIT(S)

REACTIONS (5)
  - SYNCOPE [None]
  - BLOOD GLUCOSE INCREASED [None]
  - GLYCOSYLATED HAEMOGLOBIN INCREASED [None]
  - DRUG INEFFECTIVE [None]
  - HYPOGLYCAEMIA [None]
